FAERS Safety Report 19521709 (Version 1)
Quarter: 2021Q3

REPORT INFORMATION
  Report Type: Spontaneous
  Country: CA (occurrence: CA)
  Receive Date: 20210712
  Receipt Date: 20210712
  Transmission Date: 20211014
  Serious: Yes (Other)
  Sender: FDA-Public Use
  Company Number: CA-PFIZER INC-2021798555

PATIENT
  Age: 48 Year
  Sex: Female

DRUGS (2)
  1. DULOXETINE. [Suspect]
     Active Substance: DULOXETINE
     Dosage: UNK
     Route: 048
  2. HEPARIN SODIUM. [Suspect]
     Active Substance: HEPARIN SODIUM
     Dosage: UNK

REACTIONS (8)
  - Headache [Unknown]
  - Pruritus [Unknown]
  - Vertigo [Unknown]
  - Skin ulcer [Unknown]
  - Vision blurred [Unknown]
  - Nausea [Unknown]
  - Dyspnoea [Unknown]
  - Chest pain [Unknown]
